FAERS Safety Report 10334144 (Version 1)
Quarter: 2014Q3

REPORT INFORMATION
  Report Type: Report from Study
  Country: ES (occurrence: ES)
  Receive Date: 20140723
  Receipt Date: 20140723
  Transmission Date: 20150326
  Serious: Yes (Hospitalization)
  Sender: FDA-Public Use
  Company Number: ES-ROCHE-1438941

PATIENT
  Age: 81 Year
  Sex: Male

DRUGS (6)
  1. TORASEMIDA [Concomitant]
  2. SINTROM [Concomitant]
     Active Substance: ACENOCOUMAROL
  3. LOSARTAN [Concomitant]
     Active Substance: LOSARTAN
  4. COLCHIMAX [Concomitant]
     Active Substance: COLCHICINE\DICYCLOMINE HYDROCHLORIDE
  5. RANIBIZUMAB [Suspect]
     Active Substance: RANIBIZUMAB
     Indication: AGE-RELATED MACULAR DEGENERATION
     Dosage: DOSE : 0.05 CM3, MOST RECENT DOSE OF RANIBIZUMAB: 05/MAY/2014.
     Route: 050
     Dates: start: 20140113
  6. SEGURIL [Concomitant]
     Active Substance: FUROSEMIDE

REACTIONS (1)
  - Cardiac failure congestive [Recovered/Resolved]

NARRATIVE: CASE EVENT DATE: 20140614
